FAERS Safety Report 6574208-3 (Version None)
Quarter: 2010Q1

REPORT INFORMATION
  Report Type: 
  Country: None (occurrence: None)
  Receive Date: 20100208
  Receipt Date: 20100128
  Transmission Date: 20100710
  Serious: Yes (Other)
  Sender: FDA-Public Use
  Company Number: US-JNJCH-2010002348

PATIENT
  Age: 79 Year
  Sex: Female
  Weight: 63.5 kg

DRUGS (4)
  1. ROLAIDS [Suspect]
     Indication: DYSPEPSIA
     Dosage: TEXT:TWO TABLETS AS NEEDED
     Route: 048
     Dates: start: 20091226, end: 20100115
  2. ALENDRONATE SODIUM [Concomitant]
     Indication: BONE DISORDER
     Dosage: TEXT:70MG ONE TIME A WEEK
     Route: 048
  3. RAMIPRIL [Concomitant]
     Indication: HYPERTENSION
     Dosage: TEXT:10MG ONE A DAY
     Route: 048
  4. TRIAMTERENE AND HYDROCHLOROTHIAZID ^HARRIS^ [Concomitant]
     Indication: HYPERTENSION
     Dosage: TEXT:25 MG ONE A DAY
     Route: 048

REACTIONS (5)
  - BACTERIAL INFECTION [None]
  - CHILLS [None]
  - DECREASED APPETITE [None]
  - DIARRHOEA [None]
  - WEIGHT DECREASED [None]
